FAERS Safety Report 19268730 (Version 1)
Quarter: 2021Q2

REPORT INFORMATION
  Report Type: Spontaneous
  Country: US (occurrence: US)
  Receive Date: 20210517
  Receipt Date: 20210517
  Transmission Date: 20210717
  Serious: Yes (Life-Threatening)
  Sender: FDA-Public Use
  Company Number: None

PATIENT
  Age: 47 Year
  Sex: Male
  Weight: 72 kg

DRUGS (3)
  1. NP THYROID [Suspect]
     Active Substance: LEVOTHYROXINE\LIOTHYRONINE
     Indication: THYROID DISORDER
     Dosage: ?          QUANTITY:90 TABLET(S)?
     Route: 048
     Dates: start: 20200101, end: 20200612
  2. NATURE?THROID [Suspect]
     Active Substance: THYROID, PORCINE
  3. WP THYROID [Suspect]
     Active Substance: THYROID, PORCINE

REACTIONS (4)
  - Recalled product administered [None]
  - Hypoaesthesia [None]
  - Dyspnoea [None]
  - Chest pain [None]

NARRATIVE: CASE EVENT DATE: 20200612
